FAERS Safety Report 20151649 (Version 1)
Quarter: 2021Q4

REPORT INFORMATION
  Report Type: Spontaneous
  Country: US (occurrence: US)
  Receive Date: 20211206
  Receipt Date: 20211206
  Transmission Date: 20220303
  Serious: No
  Sender: FDA-Public Use
  Company Number: US-ORGANON-O2111USA002783

PATIENT
  Age: 32 Year
  Sex: Female

DRUGS (1)
  1. NEXPLANON [Suspect]
     Active Substance: ETONOGESTREL
     Dosage: 68 MG ROD, ONCE

REACTIONS (2)
  - Complication associated with device [Unknown]
  - No adverse event [Unknown]

NARRATIVE: CASE EVENT DATE: 20211119
